FAERS Safety Report 15967837 (Version 4)
Quarter: 2019Q3

REPORT INFORMATION
  Report Type: Report from Study
  Country: NL (occurrence: NL)
  Receive Date: 20190215
  Receipt Date: 20190709
  Transmission Date: 20191004
  Serious: Yes (Hospitalization, Other)
  Sender: FDA-Public Use
  Company Number: NL-IPSEN BIOPHARMACEUTICALS, INC.-2019-02211

PATIENT
  Sex: Male

DRUGS (3)
  1. SOMATULINE AUTOSOLUTION 90MG [Suspect]
     Active Substance: LANREOTIDE ACETATE
     Indication: NEUROENDOCRINE TUMOUR
     Route: 058
     Dates: start: 20110222
  2. VITAMIN B COMPLEX [Concomitant]
     Active Substance: CYANOCOBALAMIN\DEXPANTHENOL\NIACINAMIDE\PYRIDOXINE HYDROCHLORIDE\RIBOFLAVIN 5^-PHOSPHATE SODIUM\THIAMINE HYDROCHLORIDE\VITAMIN B COMPLEX
  3. INSULIN [Concomitant]
     Active Substance: INSULIN NOS

REACTIONS (4)
  - Diabetes mellitus [Unknown]
  - Dyspnoea [Unknown]
  - Angiopathy [Unknown]
  - Off label use [Unknown]

NARRATIVE: CASE EVENT DATE: 2018
